FAERS Safety Report 25665875 (Version 1)
Quarter: 2025Q3

REPORT INFORMATION
  Report Type: Report from Study
  Country: CA (occurrence: CA)
  Receive Date: 20250811
  Receipt Date: 20250811
  Transmission Date: 20251020
  Serious: Yes (Other)
  Sender: JOHNSON AND JOHNSON
  Company Number: CA-JNJFOC-20250408628

PATIENT
  Age: 71 Year
  Sex: Female

DRUGS (3)
  1. SIMPONI [Suspect]
     Active Substance: GOLIMUMAB
     Indication: Rheumatoid arthritis
     Route: 058
     Dates: start: 20220527, end: 20250501
  2. SIMPONI [Suspect]
     Active Substance: GOLIMUMAB
     Dosage: EXP:  JL 2027
     Route: 058
     Dates: start: 20220527, end: 20250501
  3. SIMPONI [Suspect]
     Active Substance: GOLIMUMAB
     Route: 058

REACTIONS (5)
  - Pneumonia [Recovered/Resolved]
  - Nephrolithiasis [Not Recovered/Not Resolved]
  - Macular degeneration [Unknown]
  - Productive cough [Recovering/Resolving]
  - Visual impairment [Unknown]

NARRATIVE: CASE EVENT DATE: 20250321
